FAERS Safety Report 13472584 (Version 1)
Quarter: 2017Q2

REPORT INFORMATION
  Report Type: Spontaneous
  Country: US (occurrence: US)
  Receive Date: 20170423
  Receipt Date: 20170423
  Transmission Date: 20170830
  Serious: Yes (Life-Threatening, Hospitalization, Disabling)
  Sender: FDA-Public Use
  Company Number: None

PATIENT
  Age: 35 Year
  Sex: Female
  Weight: 67.5 kg

DRUGS (1)
  1. RECLIPSEN [Suspect]
     Active Substance: DESOGESTREL\ETHINYL ESTRADIOL
     Dosage: ?          QUANTITY:28 TABLET(S);?
     Route: 048
     Dates: start: 20070401, end: 20170409

REACTIONS (4)
  - Dyspnoea [None]
  - Deep vein thrombosis [None]
  - Chest pain [None]
  - Pulmonary embolism [None]

NARRATIVE: CASE EVENT DATE: 20170409
